FAERS Safety Report 7912721-4 (Version None)
Quarter: 2011Q4

REPORT INFORMATION
  Report Type: 
  Country: None (occurrence: None)
  Receive Date: 20111114
  Receipt Date: 20111111
  Transmission Date: 20120403
  Serious: Yes (Other)
  Sender: FDA-Public Use
  Company Number: BR-PFIZER INC-2011262079

PATIENT
  Age: 63 Year
  Sex: Female
  Weight: 76 kg

DRUGS (6)
  1. VARENICLINE TARTRATE [Suspect]
     Dosage: 1 MG, 2X/DAY
     Route: 048
     Dates: start: 20110101
  2. ENALAPRIL MALEATE [Concomitant]
     Indication: HYPERTENSION
     Dosage: ONE TABLET IN THE MORNING AND ONE TABLET AT NIGHT
     Dates: start: 20110501
  3. HYDROCHLOROTHIAZIDE [Concomitant]
     Indication: HYPERTENSION
     Dosage: ONE TABLET IN THE MORNING
     Dates: start: 20080101
  4. VARENICLINE TARTRATE [Suspect]
     Indication: SMOKING CESSATION THERAPY
     Dosage: UNK
     Route: 048
     Dates: start: 20111014, end: 20110101
  5. SIMVASTATIN [Concomitant]
     Indication: BLOOD CHOLESTEROL ABNORMAL
     Dosage: ONE TABLET AT NIGHT
     Dates: start: 20080101
  6. METFORMIN [Concomitant]
     Indication: GLUCOSE TOLERANCE IMPAIRED
     Dosage: ONE TABLET AFTER LUNCH
     Dates: start: 20110701

REACTIONS (11)
  - FORMICATION [None]
  - ABDOMINAL DISCOMFORT [None]
  - APATHY [None]
  - DEPRESSED MOOD [None]
  - ARRHYTHMIA [None]
  - INCREASED APPETITE [None]
  - INSOMNIA [None]
  - BLOOD PRESSURE ABNORMAL [None]
  - HEADACHE [None]
  - SOMNOLENCE [None]
  - NERVOUSNESS [None]
